FAERS Safety Report 11064427 (Version 2)
Quarter: 2015Q2

REPORT INFORMATION
  Report Type: Spontaneous
  Country: US (occurrence: US)
  Receive Date: 20150424
  Receipt Date: 20150430
  Transmission Date: 20150821
  Serious: Yes (Other)
  Sender: FDA-Public Use
  Company Number: US-GLAXOSMITHKLINE-US2015GSK055439

PATIENT
  Age: 54 Year
  Sex: Male

DRUGS (1)
  1. AVODART [Suspect]
     Active Substance: DUTASTERIDE
     Indication: PROSTATIC DISORDER
     Dosage: UNK, U
     Route: 065
     Dates: start: 1999

REACTIONS (5)
  - Pain [Unknown]
  - Disability [Unknown]
  - Screaming [Unknown]
  - Prostatic pain [Unknown]
  - Product use issue [Unknown]

NARRATIVE: CASE EVENT DATE: 200802
